FAERS Safety Report 5740521-2 (Version None)
Quarter: 2008Q2

REPORT INFORMATION
  Report Type: 
  Country: None (occurrence: None)
  Receive Date: 20080516
  Receipt Date: 20080513
  Transmission Date: 20081010
  Serious: Yes (Hospitalization)
  Sender: FDA-Public Use
  Company Number: DE-BAYER-200817748GPV

PATIENT
  Age: 59 Year
  Sex: Female
  Weight: 49 kg

DRUGS (2)
  1. SORAFENIB [Suspect]
     Indication: METASTATIC MALIGNANT MELANOMA
     Route: 048
     Dates: start: 20080414, end: 20080427
  2. PEG-INTRON [Suspect]
     Indication: METASTATIC MALIGNANT MELANOMA
     Dosage: TOTAL DAILY DOSE: 147 ?G
     Route: 058
     Dates: start: 20080414, end: 20080421

REACTIONS (1)
  - GENERAL PHYSICAL HEALTH DETERIORATION [None]
